FAERS Safety Report 16039983 (Version 1)
Quarter: 2019Q2

REPORT INFORMATION
  Report Type: Spontaneous
  Country: US (occurrence: US)
  Receive Date: 20190305
  Receipt Date: 20190305
  Transmission Date: 20190711
  Serious: Yes (Disabling)
  Sender: FDA-Public Use
  Company Number: None

PATIENT
  Age: 49 Year
  Sex: Female
  Weight: 72 kg

DRUGS (1)
  1. LEVOFLOXACIN. [Suspect]
     Active Substance: LEVOFLOXACIN
     Indication: DIVERTICULITIS
     Dosage: ?          QUANTITY:1 TABLET(S);?
     Route: 048
     Dates: start: 20150131, end: 20150204

REACTIONS (17)
  - Systemic lupus erythematosus [None]
  - Blindness [None]
  - Deafness [None]
  - Depression [None]
  - Hyperaesthesia [None]
  - Amnesia [None]
  - Muscular weakness [None]
  - Hypoaesthesia [None]
  - Feeling abnormal [None]
  - Anxiety [None]
  - Dysgeusia [None]
  - Frustration tolerance decreased [None]
  - Metal poisoning [None]
  - Insomnia [None]
  - Lyme disease [None]
  - Gait disturbance [None]
  - Emotional distress [None]

NARRATIVE: CASE EVENT DATE: 20150131
